FAERS Safety Report 15857762 (Version 1)
Quarter: 2019Q1

REPORT INFORMATION
  Report Type: Spontaneous
  Country: FR (occurrence: FR)
  Receive Date: 20190123
  Receipt Date: 20190123
  Transmission Date: 20190417
  Serious: Yes (Other)
  Sender: FDA-Public Use
  Company Number: PHHY2019FR013256

PATIENT
  Age: 77 Year
  Sex: Female

DRUGS (2)
  1. BISOPROLOL [Suspect]
     Active Substance: BISOPROLOL
     Indication: RHEUMATIC HEART DISEASE
     Dosage: 2.5 MG, QD
     Route: 048
     Dates: start: 201808, end: 20181008
  2. HEMIGOXINE NATIVELLE [Suspect]
     Active Substance: DIGOXIN
     Indication: RHEUMATIC HEART DISEASE
     Dosage: 0.13 MG, QD
     Route: 048
     Dates: start: 201808, end: 20181008

REACTIONS (2)
  - Rash pruritic [Recovered/Resolved]
  - Eosinophilia [Recovered/Resolved]

NARRATIVE: CASE EVENT DATE: 201809
